FAERS Safety Report 5843262-6 (Version None)
Quarter: 2008Q3

REPORT INFORMATION
  Report Type: 
  Country: None (occurrence: None)
  Receive Date: 20080813
  Receipt Date: 20080808
  Transmission Date: 20090109
  Serious: Yes (Hospitalization)
  Sender: FDA-Public Use
  Company Number: GB-ASTRAZENECA-2008GB00385

PATIENT
  Age: 31487 Day
  Sex: Male

DRUGS (7)
  1. ATENOLOL [Suspect]
     Indication: BLOOD PRESSURE INCREASED
     Route: 048
     Dates: end: 20080124
  2. BENDROFLUMETHIAZIDE [Suspect]
     Indication: BLOOD PRESSURE INCREASED
     Route: 048
     Dates: end: 20080124
  3. CLORFENAMINE [Concomitant]
  4. LACTULOSE [Concomitant]
  5. PREDNISOLONE [Concomitant]
  6. ASPIRIN [Concomitant]
  7. DIGOXIN [Concomitant]

REACTIONS (1)
  - JAUNDICE [None]
